FAERS Safety Report 4337678-7 (Version None)
Quarter: 2004Q2

REPORT INFORMATION
  Report Type: 
  Country: None (occurrence: None)
  Receive Date: 20040407
  Receipt Date: 20040325
  Transmission Date: 20050107
  Serious: Yes (Hospitalization)
  Sender: FDA-Public Use
  Company Number: NO-JNJFOC-20040305769

PATIENT
  Age: 22 Year
  Sex: Female
  Weight: 50 kg

DRUGS (3)
  1. REMICADE [Suspect]
     Indication: PYODERMA GANGRENOSUM
     Dosage: 4 MG/KG, INTRAVENOUS
     Route: 042
     Dates: start: 20040323
  2. ASTHMA TREATMENT(ANTI-ASTHMATICS) [Concomitant]
  3. ANALGESICS (ANALGESICS) [Concomitant]

REACTIONS (3)
  - DRUG WITHDRAWAL SYNDROME [None]
  - HEADACHE [None]
  - HYPERSENSITIVITY [None]
